FAERS Safety Report 18912994 (Version 4)
Quarter: 2021Q1

REPORT INFORMATION
  Report Type: Report from Study
  Country: None (occurrence: CH)
  Receive Date: 20210219
  Receipt Date: 20210318
  Transmission Date: 20210420
  Serious: Yes (Hospitalization, Other)
  Sender: FDA-Public Use
  Company Number: CH-ABBVIE-21K-151-3778758-00

PATIENT
  Age: 41 Year
  Sex: Male

DRUGS (3)
  1. DUODOPA [Suspect]
     Active Substance: CARBIDOPA\LEVODOPA
     Dosage: MD: 0 ML, CRD: 3.4 ML/H, CRN: 1.6 ML/H, ED: 0 ML, LOCK LEVEL 1
     Route: 050
     Dates: start: 20210303
  2. DUODOPA [Suspect]
     Active Substance: CARBIDOPA\LEVODOPA
     Indication: PARKINSON^S DISEASE
     Dosage: MD: 0.5 ML, CRD: 2.7 ML/H, CRN: 0 ML/H, ED: 1 ML
     Route: 050
     Dates: start: 20200831, end: 20201209
  3. DUODOPA [Suspect]
     Active Substance: CARBIDOPA\LEVODOPA
     Dosage: MD: 0 ML, CRD: 3.4 ML/H, CRN: 1.5 ML/H, ED: 1 ML
     Route: 050
     Dates: start: 20201209, end: 20210303

REACTIONS (11)
  - Akinesia [Unknown]
  - Derailment [Recovered/Resolved]
  - Unevaluable event [Unknown]
  - Dyskinesia [Unknown]
  - Device connection issue [Recovered/Resolved]
  - Device use issue [Recovered/Resolved]
  - Bradykinesia [Unknown]
  - Rehabilitation therapy [Recovered/Resolved]
  - Device use issue [Unknown]
  - Device dislocation [Unknown]
  - Gait disturbance [Unknown]

NARRATIVE: CASE EVENT DATE: 2021
